FAERS Safety Report 7938278 (Version 4)
Quarter: 2013Q2

REPORT INFORMATION
  Report Type: Spontaneous
  Country: US (occurrence: None)
  Receive Date: 20110420
  Receipt Date: 20130517
  Transmission Date: 20140414
  Serious: Yes (Hospitalization, Other)
  Sender: FDA-Public Use
  Company Number: CIP11000527

PATIENT
  Age: 90 Year
  Sex: Female

DRUGS (40)
  1. ACTONEL [Suspect]
     Indication: OSTEOPOROSIS
     Route: 048
     Dates: start: 20020621, end: 200801
  2. FOSAMAX [Suspect]
     Indication: OSTEOPOROSIS
     Route: 048
     Dates: start: 20080430
  3. LASIX [Concomitant]
  4. LISINOPRIL (LISINOPRIL) [Concomitant]
  5. VOLTAREN [Concomitant]
  6. ASPIRIN [Concomitant]
  7. EVISTA /01303201/ (RALOXIFENE) [Concomitant]
  8. PROTONIX [Concomitant]
  9. COMBIVENT [Concomitant]
  10. MULTIVITAMIN /00097801/ (ASCORBIC ACID, CALCIUM PANTOTHENATE, ERGOCALCIFEROL, ICOTINAMIDE,  PYRIDOXI [Concomitant]
  11. OSCAL/00108001/ (CALCIUM CARBONATE) [Concomitant]
  12. AVELOX [Concomitant]
  13. FLONASE [Concomitant]
  14. MEDROL [Concomitant]
  15. ZYRTEC-D [Concomitant]
  16. ROBITUSSIN AC  /00074201/ (CODEINE PHOSPHATE, GUAIFENESIN, PHENIRAMINE MALEATE) [Concomitant]
  17. PRILOSEC [Concomitant]
  18. PENICILLIN VK /00001801/ (PHENOXYMETHYLPENICILLIN) [Concomitant]
  19. LEVAQUIN [Concomitant]
  20. PREDNISONE [Concomitant]
  21. Z-PAK (AZITHROMYCIN) PROVENTIL [Concomitant]
  22. PROVENTIL (SALBUTAMOL) [Concomitant]
  23. LOPID (GEMFIBROZIL) [Concomitant]
  24. DEPOMEDROL (METHYLPREDNISOLONE ACETATE) [Concomitant]
  25. SEPTRA (SULFAMETHOXAZOLE, TRIMETHOPRIM) [Concomitant]
  26. LOTENSIN (CAPTOPRIL) [Concomitant]
  27. BEXTRA (PARECOXIB SODIUM) [Concomitant]
  28. NORVASC (AMLODIPINE BESILATE) [Concomitant]
  29. MICRO K (POTASSIUM CHLORIDE) [Concomitant]
  30. COUMADIN (WARFARIN SODIUM) [Concomitant]
  31. ASCRIPTIN (ACETYLSALICYLIC ACID, ALUMINIUM HYDROXIDE, MAGNESIUM HYDROXIDE) [Concomitant]
  32. CIPRO (CIPROFLOXACIN) [Concomitant]
  33. PYRIDIUM (PHENAZOPYRIDINE HYDROCHLORIDE) [Concomitant]
  34. TUMS (CALCIUM CARBONATE) [Concomitant]
  35. PEPCID (FAMOTIDINE) [Concomitant]
  36. SOLUMEDROL (METHYLPREDNISOLONE SODIUM SUCCINATE) [Concomitant]
  37. FLOVENT (FLUTICASONE PROPIONATE) [Concomitant]
  38. OXYCODONE/APAP [Concomitant]
  39. CEPHALEXIN [Concomitant]
  40. ALENDRONATE (ALENDRONATE SODIUM) [Suspect]

REACTIONS (12)
  - Comminuted fracture [None]
  - Femur fracture [None]
  - Fall [None]
  - Arthralgia [None]
  - Pain in extremity [None]
  - Haemoglobin decreased [None]
  - Mobility decreased [None]
  - Activities of daily living impaired [None]
  - VIIth nerve paralysis [None]
  - Cerebral infarction [None]
  - Cystitis interstitial [None]
  - Nervous system disorder [None]
